FAERS Safety Report 4713702-4 (Version None)
Quarter: 2005Q3

REPORT INFORMATION
  Report Type: 
  Country: None (occurrence: None)
  Receive Date: 20050712
  Receipt Date: 20050623
  Transmission Date: 20060218
  Serious: No
  Sender: FDA-Public Use
  Company Number: USA0506101263

PATIENT
  Sex: Male

DRUGS (2)
  1. STRATTERA [Suspect]
  2. LITHIUM [Concomitant]

REACTIONS (1)
  - HEPATIC ENZYME INCREASED [None]
